FAERS Safety Report 15208442 (Version 1)
Quarter: 2018Q3

REPORT INFORMATION
  Report Type: Spontaneous
  Country: US (occurrence: US)
  Receive Date: 20180628
  Receipt Date: 20180628
  Transmission Date: 20181010
  Serious: No
  Sender: FDA-Public Use
  Company Number: None

PATIENT
  Age: 39 Year
  Sex: Female

DRUGS (1)
  1. TREMFYA [Suspect]
     Active Substance: GUSELKUMAB

REACTIONS (3)
  - Influenza like illness [None]
  - Drug dose omission [None]
  - Arthralgia [None]

NARRATIVE: CASE EVENT DATE: 20180521
